FAERS Safety Report 24417642 (Version 1)
Quarter: 2024Q4

REPORT INFORMATION
  Report Type: Spontaneous
  Country: US (occurrence: None)
  Receive Date: 20241009
  Receipt Date: 20241009
  Transmission Date: 20250114
  Serious: Yes (Hospitalization)
  Sender: Public
  Company Number: None

PATIENT
  Age: 61 Year
  Sex: Male

DRUGS (11)
  1. STELARA [Suspect]
     Active Substance: USTEKINUMAB
     Indication: Psoriasis
     Route: 058
     Dates: start: 20151217
  2. ASPIRIN CHW 81MG [Concomitant]
  3. ATORVASTATIN TAB 20MG [Concomitant]
  4. ATORVASTATIN [Concomitant]
     Active Substance: ATORVASTATIN
  5. BENZONATATE CAP 100MG [Concomitant]
  6. BRILINTA TAB 90MG [Concomitant]
  7. BUPROPN HCL TAB 150MG XL [Concomitant]
  8. ENGERIX-B INJ 20MCG/ML [Concomitant]
  9. FLUOXETINE CAP 40MG [Concomitant]
  10. FUROSEMIDE [Concomitant]
     Active Substance: FUROSEMIDE
  11. LEVOTHYROXIN TAB 25MCG [Concomitant]

REACTIONS (1)
  - Hospitalisation [None]

NARRATIVE: CASE EVENT DATE: 20241009
